FAERS Safety Report 7491288-1 (Version None)
Quarter: 2011Q2

REPORT INFORMATION
  Report Type: 
  Country: None (occurrence: None)
  Receive Date: 20110518
  Receipt Date: 20110518
  Transmission Date: 20111010
  Serious: Yes (Other)
  Sender: FDA-Public Use
  Company Number: None

PATIENT
  Age: 48 Year
  Sex: Female
  Weight: 73.9363 kg

DRUGS (4)
  1. CABERGOLINE [Suspect]
     Indication: BLOOD PROLACTIN INCREASED
     Dosage: HALF TAB  EVERY 4 DAYS PO
     Route: 048
     Dates: start: 20110310, end: 20110513
  2. CABERGOLINE [Suspect]
     Indication: POLYMENORRHOEA
     Dosage: HALF TAB  EVERY 4 DAYS PO
     Route: 048
     Dates: start: 20110310, end: 20110513
  3. CABERGOLINE [Suspect]
     Indication: EMOTIONAL DISORDER
     Dosage: HALF TAB  EVERY 4 DAYS PO
     Route: 048
     Dates: start: 20110310, end: 20110513
  4. CABERGOLINE [Suspect]
     Indication: ABDOMINAL DISTENSION
     Dosage: HALF TAB  EVERY 4 DAYS PO
     Route: 048
     Dates: start: 20110310, end: 20110513

REACTIONS (4)
  - NAUSEA [None]
  - VISUAL IMPAIRMENT [None]
  - FEELING ABNORMAL [None]
  - DIZZINESS [None]
